FAERS Safety Report 6126883-5 (Version None)
Quarter: 2009Q1

REPORT INFORMATION
  Report Type: 
  Country: None (occurrence: None)
  Receive Date: 20090320
  Receipt Date: 20081201
  Transmission Date: 20090719
  Serious: No
  Sender: FDA-Public Use
  Company Number: US-ABBOTT-08P-163-0490488-00

PATIENT
  Sex: Female
  Weight: 47.216 kg

DRUGS (2)
  1. ERYTHROMYCIN BASE [Suspect]
     Indication: DRUG USE FOR UNKNOWN INDICATION
     Route: 048
     Dates: start: 20030101
  2. ERYTHROCIN OINTMENT [Suspect]
     Indication: EYE DISORDER
     Route: 061

REACTIONS (1)
  - PRURITUS [None]
